FAERS Safety Report 24252958 (Version 1)
Quarter: 2024Q3

REPORT INFORMATION
  Report Type: Report from Study
  Country: JP (occurrence: JP)
  Receive Date: 20240827
  Receipt Date: 20240827
  Transmission Date: 20241017
  Serious: Yes (Other)
  Sender: UCB
  Company Number: JP-UCBSA-2024041856

PATIENT

DRUGS (1)
  1. BIMEKIZUMAB [Suspect]
     Active Substance: BIMEKIZUMAB
     Indication: Psoriasis
     Dosage: 320 MILLIGRAM, EV 4 WEEKS

REACTIONS (9)
  - Psoriatic arthropathy [Unknown]
  - Pruritus [Unknown]
  - Oral candidiasis [Recovered/Resolved]
  - Dyshidrotic eczema [Unknown]
  - Cellulitis [Unknown]
  - Transaminases increased [Unknown]
  - Blepharitis [Unknown]
  - Fatigue [Unknown]
  - Dermatitis atopic [Unknown]
